FAERS Safety Report 17494318 (Version 1)
Quarter: 2020Q1

REPORT INFORMATION
  Report Type: Spontaneous
  Country: JP (occurrence: JP)
  Receive Date: 20200304
  Receipt Date: 20200304
  Transmission Date: 20200409
  Serious: Yes (Hospitalization)
  Sender: FDA-Public Use
  Company Number: JP-MYLANLABS-2020M1021560

PATIENT
  Age: 8 Decade
  Sex: Male

DRUGS (22)
  1. PEMETREXED. [Suspect]
     Active Substance: PEMETREXED
     Indication: LUNG ADENOCARCINOMA STAGE IV
     Dosage: 880 MILLIGRAM, CYCLE
     Route: 065
     Dates: start: 20191224, end: 20191224
  2. KEYTRUDA [Suspect]
     Active Substance: PEMBROLIZUMAB
     Dosage: 200 MILLIGRAM, CYCLE
     Route: 041
     Dates: start: 20200121, end: 20200121
  3. KEYTRUDA [Suspect]
     Active Substance: PEMBROLIZUMAB
     Dosage: 200 MILLIGRAM, CYCLE
     Route: 041
     Dates: start: 20200213, end: 20200213
  4. DECADRON [Concomitant]
     Active Substance: DEXAMETHASONE
     Dosage: 4 MILLIGRAM, QD
     Route: 048
     Dates: start: 20200122, end: 20200124
  5. CARBOPLATIN INJ. 150MG ^NK^ [Suspect]
     Active Substance: CARBOPLATIN
     Dosage: 270 MILLIGRAM, CYCLE
     Route: 041
     Dates: start: 20200121, end: 20200121
  6. DEXART [Concomitant]
     Active Substance: DEXAMETHASONE SODIUM PHOSPHATE
     Dosage: 4.95 MILLIGRAM, QD
     Route: 065
     Dates: start: 20200121, end: 20200121
  7. PREMINENT [Concomitant]
     Active Substance: HYDROCHLOROTHIAZIDE\LOSARTAN POTASSIUM
     Indication: HYPERTENSION
     Dosage: 1 DOSAGE FORM, QD
     Route: 048
  8. PEMETREXED. [Suspect]
     Active Substance: PEMETREXED
     Dosage: 680 MILLIGRAM, CYCLE
     Route: 065
     Dates: start: 20200121, end: 20200121
  9. DECADRON [Concomitant]
     Active Substance: DEXAMETHASONE
     Indication: PRODUCT USED FOR UNKNOWN INDICATION
     Dosage: 4 MILLIGRAM, QD
     Route: 048
     Dates: start: 20191225, end: 20191227
  10. CRESTOR [Concomitant]
     Active Substance: ROSUVASTATIN CALCIUM
     Indication: DYSLIPIDAEMIA
     Dosage: 5 MILLIGRAM, QD
     Route: 048
  11. SOLANAX [Concomitant]
     Active Substance: ALPRAZOLAM
     Indication: PRODUCT USED FOR UNKNOWN INDICATION
     Dosage: UNK UNK, PRN
     Route: 048
  12. CARBOPLATIN INJ. 150MG ^NK^ [Suspect]
     Active Substance: CARBOPLATIN
     Indication: LUNG ADENOCARCINOMA STAGE IV
     Dosage: 360 MILLIGRAM, CYCLE
     Route: 041
     Dates: start: 20191224, end: 20191224
  13. NEUROVITAN                         /00176001/ [Concomitant]
     Active Substance: CYANOCOBALAMIN\PYRIDOXINE HYDROCHLORIDE\THIAMINE
     Indication: PRODUCT USED FOR UNKNOWN INDICATION
     Dosage: 1 DOSAGE FORM, TID
     Route: 048
  14. CARBOPLATIN INJ. 150MG ^NK^ [Suspect]
     Active Substance: CARBOPLATIN
     Dosage: 270 MILLIGRAM, CYCLE
     Route: 041
     Dates: start: 20200213, end: 20200213
  15. TAKECAB [Concomitant]
     Active Substance: VONOPRAZAN FUMARATE
     Indication: GASTROOESOPHAGEAL REFLUX DISEASE
     Dosage: 10 MILLIGRAM, QD
     Route: 048
  16. BORRAZA-G [Concomitant]
     Active Substance: LIDOCAINE\TRIBENOSIDE
     Indication: PRODUCT USED FOR UNKNOWN INDICATION
     Dosage: UNK UNK, PRN
     Route: 054
  17. DEXART [Concomitant]
     Active Substance: DEXAMETHASONE SODIUM PHOSPHATE
     Indication: PRODUCT USED FOR UNKNOWN INDICATION
     Dosage: 4.95 MILLIGRAM, QD
     Route: 065
     Dates: start: 20191224, end: 20191224
  18. DELUX C [Concomitant]
     Indication: PRODUCT USED FOR UNKNOWN INDICATION
     Dosage: 1P, TID
     Route: 048
  19. PEMETREXED. [Suspect]
     Active Substance: PEMETREXED
     Dosage: 680 MILLIGRAM, CYCLE
     Route: 065
     Dates: start: 20200213, end: 20200213
  20. KEYTRUDA [Suspect]
     Active Substance: PEMBROLIZUMAB
     Indication: LUNG ADENOCARCINOMA STAGE IV
     Dosage: 200 MILLIGRAM, CYCLE
     Route: 041
     Dates: start: 20191224, end: 20191224
  21. FOLIAMIN [Concomitant]
     Active Substance: FOLIC ACID
     Indication: PRODUCT USED FOR UNKNOWN INDICATION
     Dosage: 0.1 DOSAGE FORM, QD
     Route: 048
  22. MOHRUS L [Concomitant]
     Active Substance: KETOPROFEN
     Indication: PRODUCT USED FOR UNKNOWN INDICATION

REACTIONS (3)
  - Hyponatraemia [Recovering/Resolving]
  - Bone marrow failure [Recovering/Resolving]
  - Decreased appetite [Unknown]

NARRATIVE: CASE EVENT DATE: 20191230
